FAERS Safety Report 8266502-5 (Version None)
Quarter: 2012Q2

REPORT INFORMATION
  Report Type: 
  Country: None (occurrence: None)
  Receive Date: 20120406
  Receipt Date: 20120329
  Transmission Date: 20120825
  Serious: Yes (Other)
  Sender: FDA-Public Use
  Company Number: US-ASTRAZENECA-2012SE03344

PATIENT
  Age: 59 Year
  Sex: Female
  Weight: 62.1 kg

DRUGS (2)
  1. PROTONIX [Concomitant]
  2. NEXIUM [Suspect]
     Indication: GASTROOESOPHAGEAL REFLUX DISEASE
     Route: 048

REACTIONS (2)
  - ABDOMINAL PAIN [None]
  - HEPATOBILIARY SCAN ABNORMAL [None]
